FAERS Safety Report 8246951-1 (Version None)
Quarter: 2012Q1

REPORT INFORMATION
  Report Type: 
  Country: None (occurrence: None)
  Receive Date: 20120330
  Receipt Date: 20120328
  Transmission Date: 20120608
  Serious: Yes (Hospitalization, Other)
  Sender: FDA-Public Use
  Company Number: GR-BAYER-2012-030160

PATIENT
  Age: 76 Year
  Sex: Female

DRUGS (3)
  1. ADALAT [Suspect]
     Indication: HYPERTENSION
  2. ADALAT [Suspect]
     Indication: RAYNAUD'S PHENOMENON
     Dosage: 40 MG, QD
     Route: 048
  3. PROTON PUMP INHIBITORS [Concomitant]

REACTIONS (3)
  - CHOKING [None]
  - INTERSTITIAL LUNG DISEASE [None]
  - GASTROOESOPHAGEAL REFLUX DISEASE [None]
